FAERS Safety Report 21663560 (Version 4)
Quarter: 2023Q4

REPORT INFORMATION
  Report Type: Report from Study
  Country: GB (occurrence: GB)
  Receive Date: 20221130
  Receipt Date: 20231005
  Transmission Date: 20240109
  Serious: Yes (Hospitalization)
  Sender: FDA-Public Use
  Company Number: GB-SEATTLE GENETICS-2022SGN11151

PATIENT
  Age: 74 Year
  Sex: Female
  Weight: 97.1 kg

DRUGS (5)
  1. TUCATINIB [Suspect]
     Active Substance: TUCATINIB
     Indication: Uterine cancer
     Dosage: 300 MG, BID DAYS 1-21 OF EACH 21-DAY CYCLE
     Route: 048
     Dates: start: 20221101
  2. TRASTUZUMAB [Suspect]
     Active Substance: TRASTUZUMAB
     Indication: Uterine cancer
     Dosage: 6 MG/KG INFUSION OVER 30 MINUTES ON DAY 1 OF EACH CYCLE
     Route: 042
  3. TRASTUZUMAB [Suspect]
     Active Substance: TRASTUZUMAB
     Dosage: 8 MG/KG INFUSION OVER 90 MINUTES ON DAY 1 OF CYCLE 1
     Route: 042
     Dates: start: 20221101
  4. ATORVASTATIN [Concomitant]
     Active Substance: ATORVASTATIN
     Dosage: 20 MG
     Dates: start: 2002
  5. ORAMORPH SR SUSTAINED RELEASE [Concomitant]
     Active Substance: MORPHINE SULFATE
     Indication: Pain
     Dosage: 5 MG
     Dates: start: 2022

REACTIONS (1)
  - Blood creatinine increased [Not Recovered/Not Resolved]

NARRATIVE: CASE EVENT DATE: 20221119
